FAERS Safety Report 7708510-6 (Version None)
Quarter: 2011Q3

REPORT INFORMATION
  Report Type: 
  Country: None (occurrence: None)
  Receive Date: 20110824
  Receipt Date: 20110824
  Transmission Date: 20111222
  Serious: Yes (Other)
  Sender: FDA-Public Use
  Company Number: None

PATIENT
  Age: 48 Year
  Sex: Male
  Weight: 71.2147 kg

DRUGS (1)
  1. RIBASPHERE [Suspect]
     Indication: HEPATITIS C
     Dosage: 3 CAPS BY MOUTH TWICE DAILY
     Route: 048
     Dates: start: 20110729

REACTIONS (2)
  - DISCOMFORT [None]
  - CHEST PAIN [None]
